FAERS Safety Report 25152190 (Version 1)
Quarter: 2025Q2

REPORT INFORMATION
  Report Type: Spontaneous
  Country: DE (occurrence: DE)
  Receive Date: 20250402
  Receipt Date: 20250402
  Transmission Date: 20250717
  Serious: Yes (Congenital Anomaly, Other)
  Sender: BIOMARIN
  Company Number: DE-EMB-M202309336-1

PATIENT

DRUGS (2)
  1. KUVAN [Suspect]
     Active Substance: SAPROPTERIN DIHYDROCHLORIDE
     Indication: Foetal exposure during pregnancy
     Dosage: STARTED PRECONCEPTION
     Route: 064
     Dates: start: 202309, end: 202406
  2. COVAXIS [Concomitant]
     Indication: Immunisation
     Route: 064
     Dates: start: 202404, end: 202404

REACTIONS (3)
  - Ventricular septal defect [Unknown]
  - Atrial septal defect [Unknown]
  - Foetal exposure during pregnancy [Unknown]
